FAERS Safety Report 4283427-0 (Version None)
Quarter: 2004Q1

REPORT INFORMATION
  Report Type: 
  Country: None (occurrence: None)
  Receive Date: 20040129
  Receipt Date: 20040122
  Transmission Date: 20041129
  Serious: Yes (Life-Threatening, Hospitalization)
  Sender: FDA-Public Use
  Company Number: 2002CG00270

PATIENT
  Age: 35 Year
  Sex: Female

DRUGS (1)
  1. MOPRAL [Suspect]
     Dosage: 20 MG DAILY PO
     Dates: start: 20011107

REACTIONS (2)
  - ANAPHYLACTIC REACTION [None]
  - REACTION TO DRUG EXCIPIENT [None]
